FAERS Safety Report 6417046-4 (Version None)
Quarter: 2009Q4

REPORT INFORMATION
  Report Type: 
  Country: None (occurrence: None)
  Receive Date: 20091026
  Receipt Date: 20091019
  Transmission Date: 20100525
  Serious: Yes (Hospitalization, Other)
  Sender: FDA-Public Use
  Company Number: 2009-200624-NL

PATIENT
  Age: 46 Year
  Sex: Female

DRUGS (1)
  1. REMERON [Suspect]
     Indication: DEPRESSION
     Dosage: 15 MG; QD

REACTIONS (9)
  - ACTIVITIES OF DAILY LIVING IMPAIRED [None]
  - ATAXIA [None]
  - FATIGUE [None]
  - GRIP STRENGTH DECREASED [None]
  - MYOCLONUS [None]
  - MYOPATHY [None]
  - PARAESTHESIA [None]
  - RHEUMATOID ARTHRITIS [None]
  - WEIGHT DECREASED [None]
